FAERS Safety Report 17555417 (Version 1)
Quarter: 2020Q1

REPORT INFORMATION
  Report Type: Report from Study
  Country: None (occurrence: US)
  Receive Date: 20200318
  Receipt Date: 20200318
  Transmission Date: 20200409
  Serious: Yes (Other)
  Sender: FDA-Public Use
  Company Number: US-ABBVIE-20K-163-3325226-00

PATIENT
  Age: 72 Year
  Sex: Female
  Weight: 69.01 kg

DRUGS (2)
  1. BCG [Suspect]
     Active Substance: BCG VACCINE
     Indication: BLADDER CANCER
     Dosage: 2 DOSES
     Route: 065
  2. SYNTHROID [Suspect]
     Active Substance: LEVOTHYROXINE SODIUM
     Indication: PRODUCT USED FOR UNKNOWN INDICATION
     Dosage: START DATE OF DRUG: WHEN SHE WAS IN HER 60^S
     Route: 048

REACTIONS (4)
  - Cystitis [Recovered/Resolved]
  - Blood cholesterol increased [Unknown]
  - Bladder cancer [Recovering/Resolving]
  - Hypertension [Unknown]

NARRATIVE: CASE EVENT DATE: 2015
